FAERS Safety Report 6701063-0 (Version None)
Quarter: 2010Q2

REPORT INFORMATION
  Report Type: 
  Country: None (occurrence: None)
  Receive Date: 20100428
  Receipt Date: 20100414
  Transmission Date: 20101027
  Serious: Yes (Hospitalization)
  Sender: FDA-Public Use
  Company Number: US-ELI_LILLY_AND_COMPANY-US201003004801

PATIENT
  Sex: Female
  Weight: 72.562 kg

DRUGS (18)
  1. FORTEO [Suspect]
     Indication: OSTEOPOROSIS
     Dosage: 20 UG, DAILY (1/D)
     Dates: start: 20091217, end: 20100101
  2. FORTEO [Suspect]
     Dosage: 20 UG, DAILY (1/D)
     Dates: start: 20100101, end: 20100201
  3. SPIRIVA [Concomitant]
  4. SYMBICORT [Concomitant]
  5. ALBUTEROL [Concomitant]
     Route: 055
  6. ROPINIROLE [Concomitant]
     Indication: RESTLESS LEGS SYNDROME
  7. ZOLPIDEM [Concomitant]
  8. SIMVASTATIN [Concomitant]
     Indication: BLOOD CHOLESTEROL
  9. LISINOPRIL AND HYDROCHLOROTHIAZIDE [Concomitant]
     Indication: BLOOD PRESSURE
  10. DILTIAZEM HCL [Concomitant]
     Indication: BLOOD PRESSURE
  11. MOBIC [Concomitant]
  12. POTASSIUM CHLORIDE [Concomitant]
  13. LASIX [Concomitant]
  14. AMBIEN [Concomitant]
  15. ZOMIG [Concomitant]
  16. ATIVAN [Concomitant]
  17. CEFLEXIN [Concomitant]
  18. CARTIA XT [Concomitant]

REACTIONS (3)
  - ASTHENIA [None]
  - CHRONIC OBSTRUCTIVE PULMONARY DISEASE [None]
  - MALAISE [None]
